FAERS Safety Report 4741668-X (Version None)
Quarter: 2005Q3

REPORT INFORMATION
  Report Type: 
  Country: None (occurrence: None)
  Receive Date: 20050804
  Receipt Date: 20040804
  Transmission Date: 20060218
  Serious: Yes (Other)
  Sender: FDA-Public Use
  Company Number: 04-300-0937

PATIENT
  Age: 71 Year
  Sex: Male

DRUGS (3)
  1. MIDAZOLAM PF 1MG/ML (5ML), BEN VENUE LABS [Suspect]
     Indication: ENDOSCOPY
     Dosage: 3MG X 1
     Dates: start: 20040802
  2. MIDAZOLAM PF 1MG/ML (5ML), BEN VENUE LABS [Suspect]
     Indication: SEDATION
     Dosage: 3MG X 1
     Dates: start: 20040802
  3. DEMEROL [Concomitant]

REACTIONS (1)
  - UNEVALUABLE EVENT [None]
